FAERS Safety Report 4710136-3 (Version None)
Quarter: 2005Q2

REPORT INFORMATION
  Report Type: 
  Country: None (occurrence: None)
  Receive Date: 20050629
  Receipt Date: 20050308
  Transmission Date: 20051028
  Serious: No
  Sender: FDA-Public Use
  Company Number: 05P-163-0293087-00

PATIENT
  Age: 66 Year
  Sex: Female
  Weight: 81.6475 kg

DRUGS (7)
  1. HUMIRA [Suspect]
     Indication: RHEUMATOID ARTHRITIS
     Dosage: 40 MG, 1 IN2 WK, SUBCUTANEOUS
     Route: 057
     Dates: start: 20030301
  2. LEFLUNOMIDE [Concomitant]
  3. TOPROL-XL [Concomitant]
  4. FUROSEMIDE [Concomitant]
  5. IRBESARTAN [Concomitant]
  6. CALCIUM SUPPLEMENT [Concomitant]
  7. CETIRIZINE HYDROCHLORIDE [Concomitant]

REACTIONS (1)
  - PNEUMONIA [None]
